FAERS Safety Report 10809298 (Version 1)
Quarter: 2015Q1

REPORT INFORMATION
  Report Type: Spontaneous
  Country: US (occurrence: None)
  Receive Date: 20150213
  Receipt Date: 20150213
  Transmission Date: 20150721
  Serious: Yes (Other)
  Sender: FDA-Public Use
  Company Number: None

PATIENT
  Age: 59 Year
  Sex: Female
  Weight: 56.7 kg

DRUGS (1)
  1. LEVOFLOXACIN. [Suspect]
     Active Substance: LEVOFLOXACIN
     Indication: DIVERTICULITIS
     Dosage: 500 MG 1 PILL ONCE A DAY BY MOUTH
     Route: 048
     Dates: start: 20140727, end: 20140803

REACTIONS (4)
  - Musculoskeletal pain [None]
  - Arthralgia [None]
  - Musculoskeletal disorder [None]
  - Impaired work ability [None]

NARRATIVE: CASE EVENT DATE: 20140803
